FAERS Safety Report 17605042 (Version 1)
Quarter: 2020Q1

REPORT INFORMATION
  Report Type: Spontaneous
  Country: US (occurrence: US)
  Receive Date: 20200331
  Receipt Date: 20200331
  Transmission Date: 20200409
  Serious: Yes (Disabling)
  Sender: FDA-Public Use
  Company Number: None

PATIENT
  Age: 59 Year
  Sex: Female
  Weight: 47.25 kg

DRUGS (6)
  1. MULTI VITAMIN [Concomitant]
     Active Substance: VITAMINS
  2. COREG [Concomitant]
     Active Substance: CARVEDILOL
  3. GABAPENTIN. [Suspect]
     Active Substance: GABAPENTIN
     Indication: PROCEDURAL PAIN
     Dosage: ?          QUANTITY:1 CAPSULE(S);?
     Route: 048
     Dates: start: 20190801, end: 20200331
  4. GABAPENTIN. [Suspect]
     Active Substance: GABAPENTIN
     Indication: NEUROPATHY PERIPHERAL
     Dosage: ?          QUANTITY:1 CAPSULE(S);?
     Route: 048
     Dates: start: 20190801, end: 20200331
  5. LOSARTAN. [Concomitant]
     Active Substance: LOSARTAN
  6. ASPIRIN. [Concomitant]
     Active Substance: ASPIRIN

REACTIONS (14)
  - Confusional state [None]
  - Ataxia [None]
  - Lethargy [None]
  - Urticaria [None]
  - Chills [None]
  - Mood altered [None]
  - Influenza like illness [None]
  - Pain [None]
  - Withdrawal syndrome [None]
  - Depression [None]
  - Irritable bowel syndrome [None]
  - Asthenia [None]
  - Dermatitis [None]
  - Decreased appetite [None]

NARRATIVE: CASE EVENT DATE: 20200331
